FAERS Safety Report 12832772 (Version 1)
Quarter: 2016Q4

REPORT INFORMATION
  Report Type: Spontaneous
  Country: US (occurrence: US)
  Receive Date: 20161010
  Receipt Date: 20161010
  Transmission Date: 20170207
  Serious: No
  Sender: FDA-Public Use
  Company Number: US-PFM-US-2016-2473

PATIENT
  Age: 6 Month
  Sex: Female
  Weight: 6.8 kg

DRUGS (2)
  1. HEMANGEOL [Suspect]
     Active Substance: PROPRANOLOL HYDROCHLORIDE
     Indication: INFANTILE HAEMANGIOMA
     Dosage: 1 ML, UNK
     Route: 048
     Dates: start: 20160809
  2. HEMANGEOL [Suspect]
     Active Substance: PROPRANOLOL HYDROCHLORIDE
     Dosage: 2 ML, UNK
     Route: 048

REACTIONS (3)
  - Vomiting [Unknown]
  - Sleep disorder [Unknown]
  - Agitation [Unknown]

NARRATIVE: CASE EVENT DATE: 201608
